FAERS Safety Report 20439039 (Version 2)
Quarter: 2022Q1

REPORT INFORMATION
  Report Type: Spontaneous
  Country: PL (occurrence: PL)
  Receive Date: 20220207
  Receipt Date: 20220304
  Transmission Date: 20220424
  Serious: Yes (Life-Threatening, Hospitalization, Other)
  Sender: FDA-Public Use
  Company Number: PL-NALPROPION PHARMACEUTICALS INC.-2021-014734

PATIENT
  Age: 29 Year
  Sex: Female

DRUGS (8)
  1. BUPROPION HYDROCHLORIDE [Interacting]
     Active Substance: BUPROPION HYDROCHLORIDE
     Indication: Obesity
     Dosage: 300 MG, QD (300 MILLIGRAM, QD)
     Route: 048
  2. BUPROPION HYDROCHLORIDE [Interacting]
     Active Substance: BUPROPION HYDROCHLORIDE
     Dosage: 150 MG, QD (150 MILLIGRAM, QD (THROUGH FIRST 6 DAYS)
     Route: 048
  3. OZEMPIC [Interacting]
     Active Substance: SEMAGLUTIDE
     Indication: Obesity
     Dosage: 0.5 MG, WE (0.5 MILLIGRAM, WEEKLY)
     Route: 058
  4. VORTIOXETINE [Interacting]
     Active Substance: VORTIOXETINE
     Indication: Obesity
     Dosage: 10 MG, QD (0 MILLIGRAM, QD (TAKEN AFTER LAST MEAL))
     Route: 048
  5. BUPROPION HYDROCHLORIDE\NALTREXONE HYDROCHLORIDE [Suspect]
     Active Substance: BUPROPION HYDROCHLORIDE\NALTREXONE HYDROCHLORIDE
     Indication: Obesity
     Dosage: 1 DF (8/90 MILLIGRAM, QD   )
     Route: 048
  6. BUPROPION HYDROCHLORIDE\NALTREXONE HYDROCHLORIDE [Suspect]
     Active Substance: BUPROPION HYDROCHLORIDE\NALTREXONE HYDROCHLORIDE
     Dosage: 1 DF (2 TABLETS CONTAINING 8 MG OF NALTREXONE AND 90 MG OF BUPROPION PER DAY, AFTER MAIN MEAL )
     Route: 048
  7. ONDANSETRON [Interacting]
     Active Substance: ONDANSETRON
     Indication: Prophylaxis of nausea and vomiting
     Dosage: 16 MG, QD (16 MILLIGRAM, QD )
     Route: 048
  8. NALTREXONE HYDROCHLORIDE [Suspect]
     Active Substance: NALTREXONE HYDROCHLORIDE
     Indication: Obesity
     Dosage: 8 MG, QD (8 MILLIGRAM, QD)
     Route: 065

REACTIONS (12)
  - Labelled drug-drug interaction medication error [Unknown]
  - Drug titration error [Unknown]
  - Myopathy [Recovered/Resolved]
  - Renal failure [Recovered/Resolved]
  - Contraindicated product prescribed [Unknown]
  - Off label use [Unknown]
  - Serotonin syndrome [Recovered/Resolved]
  - Contraindicated product administered [Unknown]
  - Myoglobinuria [Recovered/Resolved]
  - Product prescribing error [Unknown]
  - Rhabdomyolysis [Recovering/Resolving]
  - Labelled drug-drug interaction medication error [Unknown]
